FAERS Safety Report 20424962 (Version 1)
Quarter: 2022Q1

REPORT INFORMATION
  Report Type: Report from Study
  Country: US (occurrence: US)
  Receive Date: 20220204
  Receipt Date: 20220204
  Transmission Date: 20220423
  Serious: No
  Sender: FDA-Public Use
  Company Number: US-EXELIXIS-CABO-20036308

PATIENT
  Sex: Male

DRUGS (18)
  1. CABOMETYX [Suspect]
     Active Substance: CABOZANTINIB S-MALATE
     Indication: Hepatic cancer
     Dosage: 20 MG, QD
     Route: 048
     Dates: start: 20201210
  2. AMLODIPINE [Concomitant]
     Active Substance: AMLODIPINE BESYLATE
  3. ASPIRIN [Concomitant]
     Active Substance: ASPIRIN
  4. EUTHYROX [Concomitant]
     Active Substance: LEVOTHYROXINE SODIUM
  5. GARLIC [Concomitant]
     Active Substance: GARLIC
  6. ISOSORBIDE MONONITRATE [Concomitant]
     Active Substance: ISOSORBIDE MONONITRATE
  7. LISINOPRIL [Concomitant]
     Active Substance: LISINOPRIL
  8. MECLIZINE HYDROCHLORIDE [Concomitant]
     Active Substance: MECLIZINE HYDROCHLORIDE
  9. METFORMIN HYDROCHLORIDE [Concomitant]
     Active Substance: METFORMIN HYDROCHLORIDE
  10. METOPROLOL [Concomitant]
     Active Substance: METOPROLOL
  11. VITAMINS [Concomitant]
     Active Substance: VITAMINS
  12. FISH OIL [Concomitant]
     Active Substance: FISH OIL
  13. ONDANSETRON [Concomitant]
     Active Substance: ONDANSETRON
  14. OXYCODONE HYDROCHLORIDE [Concomitant]
     Active Substance: OXYCODONE HYDROCHLORIDE
  15. PRAVASTATIN [Concomitant]
     Active Substance: PRAVASTATIN
  16. PROCHLORPERAZINE MALEATE [Concomitant]
     Active Substance: PROCHLORPERAZINE MALEATE
  17. TAMSULOSIN [Concomitant]
     Active Substance: TAMSULOSIN
  18. ZINC [Concomitant]
     Active Substance: ZINC

REACTIONS (2)
  - Exfoliative rash [Not Recovered/Not Resolved]
  - Malignant neoplasm progression [Unknown]
